FAERS Safety Report 15688989 (Version 21)
Quarter: 2022Q1

REPORT INFORMATION
  Report Type: Spontaneous
  Country: CA (occurrence: None)
  Receive Date: 20181205
  Receipt Date: 20220110
  Transmission Date: 20220423
  Serious: Yes (Hospitalization, Disabling, Other)
  Sender: FDA-Public Use
  Company Number: CA-ORION CORPORATION ORION PHARMA-TREX2016-1053

PATIENT
  Age: 54 Year
  Sex: Female

DRUGS (204)
  1. METHOTREXATE [Suspect]
     Active Substance: METHOTREXATE
     Indication: Rheumatoid arthritis
     Dosage: LOWER DOSES INITIALLY AND INCREASED OVER THE YEARS AROUND 1997
     Route: 048
     Dates: start: 1997
  2. METHOTREXATE [Suspect]
     Active Substance: METHOTREXATE
     Route: 048
  3. METHOTREXATE [Suspect]
     Active Substance: METHOTREXATE
     Route: 058
  4. METHOTREXATE [Suspect]
     Active Substance: METHOTREXATE
     Route: 058
     Dates: start: 1997
  5. METHOTREXATE [Suspect]
     Active Substance: METHOTREXATE
     Route: 048
  6. METHOTREXATE [Suspect]
     Active Substance: METHOTREXATE
     Route: 058
  7. METHOTREXATE [Suspect]
     Active Substance: METHOTREXATE
     Route: 065
     Dates: start: 201105, end: 201202
  8. METHOTREXATE [Suspect]
     Active Substance: METHOTREXATE
     Route: 048
     Dates: start: 201501
  9. METHOTREXATE [Suspect]
     Active Substance: METHOTREXATE
     Route: 065
  10. METHOTREXATE [Suspect]
     Active Substance: METHOTREXATE
     Route: 065
  11. METHOTREXATE [Suspect]
     Active Substance: METHOTREXATE
     Route: 065
  12. METHOTREXATE [Suspect]
     Active Substance: METHOTREXATE
     Route: 048
     Dates: start: 1989, end: 200806
  13. METHOTREXATE [Suspect]
     Active Substance: METHOTREXATE
     Route: 048
  14. METHOTREXATE [Suspect]
     Active Substance: METHOTREXATE
     Route: 048
     Dates: end: 201105
  15. METHOTREXATE [Suspect]
     Active Substance: METHOTREXATE
     Route: 048
  16. METHOTREXATE [Suspect]
     Active Substance: METHOTREXATE
     Route: 048
     Dates: start: 201508
  17. METHOTREXATE [Suspect]
     Active Substance: METHOTREXATE
     Route: 048
  18. METHOTREXATE [Suspect]
     Active Substance: METHOTREXATE
     Route: 058
     Dates: start: 1989
  19. METHOTREXATE [Suspect]
     Active Substance: METHOTREXATE
     Route: 058
     Dates: start: 200806
  20. METHOTREXATE [Suspect]
     Active Substance: METHOTREXATE
     Route: 058
     Dates: start: 200908
  21. METHOTREXATE [Suspect]
     Active Substance: METHOTREXATE
     Route: 058
     Dates: start: 201202, end: 201303
  22. METHOTREXATE [Suspect]
     Active Substance: METHOTREXATE
     Route: 058
     Dates: start: 201508
  23. METHOTREXATE [Suspect]
     Active Substance: METHOTREXATE
     Route: 048
  24. METHOTREXATE [Suspect]
     Active Substance: METHOTREXATE
     Route: 048
  25. METHOTREXATE [Suspect]
     Active Substance: METHOTREXATE
     Route: 048
     Dates: start: 201105, end: 201202
  26. METHOTREXATE [Suspect]
     Active Substance: METHOTREXATE
     Dosage: STRENGTH: 2.5 MG
     Route: 048
  27. METHOTREXATE [Suspect]
     Active Substance: METHOTREXATE
     Route: 065
  28. METHOTREXATE [Suspect]
     Active Substance: METHOTREXATE
     Route: 058
  29. METHOTREXATE [Suspect]
     Active Substance: METHOTREXATE
     Dosage: 25
     Route: 058
  30. METHOTREXATE [Suspect]
     Active Substance: METHOTREXATE
     Route: 065
  31. METHOTREXATE [Suspect]
     Active Substance: METHOTREXATE
     Route: 065
  32. METHOTREXATE [Suspect]
     Active Substance: METHOTREXATE
     Route: 065
  33. METHOTREXATE [Suspect]
     Active Substance: METHOTREXATE
     Route: 048
  34. METHOTREXATE [Suspect]
     Active Substance: METHOTREXATE
     Dosage: CYCLICAL
     Route: 065
  35. METHOTREXATE [Suspect]
     Active Substance: METHOTREXATE
     Dosage: CYCLICAL
     Route: 065
  36. METHOTREXATE [Suspect]
     Active Substance: METHOTREXATE
     Route: 058
  37. METHOTREXATE [Suspect]
     Active Substance: METHOTREXATE
     Dosage: CYCLICAL
     Route: 058
  38. METHOTREXATE [Suspect]
     Active Substance: METHOTREXATE
     Route: 058
  39. METHOTREXATE [Suspect]
     Active Substance: METHOTREXATE
     Route: 065
  40. METHOTREXATE [Suspect]
     Active Substance: METHOTREXATE
     Route: 065
  41. METHOTREXATE [Suspect]
     Active Substance: METHOTREXATE
     Route: 065
  42. METHOTREXATE [Suspect]
     Active Substance: METHOTREXATE
     Route: 065
  43. METHOTREXATE [Suspect]
     Active Substance: METHOTREXATE
     Route: 065
  44. METHOTREXATE [Suspect]
     Active Substance: METHOTREXATE
     Route: 065
     Dates: start: 201501
  45. METHOTREXATE [Suspect]
     Active Substance: METHOTREXATE
     Route: 065
  46. METHOTREXATE [Suspect]
     Active Substance: METHOTREXATE
     Route: 065
  47. METHOTREXATE [Suspect]
     Active Substance: METHOTREXATE
     Route: 048
  48. ENBREL [Suspect]
     Active Substance: ETANERCEPT
     Indication: Rheumatoid arthritis
     Route: 065
     Dates: start: 20080619, end: 20081112
  49. ENBREL [Suspect]
     Active Substance: ETANERCEPT
     Route: 065
  50. ENBREL [Suspect]
     Active Substance: ETANERCEPT
     Route: 065
     Dates: end: 2011
  51. ENBREL [Suspect]
     Active Substance: ETANERCEPT
     Route: 058
     Dates: end: 2011
  52. ENBREL [Suspect]
     Active Substance: ETANERCEPT
     Dosage: 2X/WEEK
     Route: 065
     Dates: end: 2011
  53. ENBREL [Suspect]
     Active Substance: ETANERCEPT
     Route: 065
     Dates: end: 2011
  54. ENBREL [Suspect]
     Active Substance: ETANERCEPT
     Dosage: 1 EVERY 2 WEEKS
     Route: 065
  55. ENBREL [Suspect]
     Active Substance: ETANERCEPT
     Route: 065
  56. ENBREL [Suspect]
     Active Substance: ETANERCEPT
     Route: 065
  57. ENBREL [Suspect]
     Active Substance: ETANERCEPT
     Dosage: 2X/WEEK
     Route: 065
  58. SULFASALAZINE [Suspect]
     Active Substance: SULFASALAZINE
     Indication: Rheumatoid arthritis
     Route: 048
  59. SULFASALAZINE [Suspect]
     Active Substance: SULFASALAZINE
     Route: 048
  60. SULFASALAZINE [Suspect]
     Active Substance: SULFASALAZINE
     Route: 065
     Dates: end: 200806
  61. SULFASALAZINE [Suspect]
     Active Substance: SULFASALAZINE
     Route: 065
  62. REMICADE [Suspect]
     Active Substance: INFLIXIMAB
     Indication: Rheumatoid arthritis
     Route: 042
     Dates: start: 2011, end: 2012
  63. REMICADE [Suspect]
     Active Substance: INFLIXIMAB
     Route: 065
  64. REMICADE [Suspect]
     Active Substance: INFLIXIMAB
     Route: 065
  65. PREDNISONE [Suspect]
     Active Substance: PREDNISONE
     Indication: Rheumatoid arthritis
     Route: 065
  66. PREDNISONE [Suspect]
     Active Substance: PREDNISONE
     Route: 048
  67. PREDNISONE [Suspect]
     Active Substance: PREDNISONE
     Route: 048
  68. PREDNISONE [Suspect]
     Active Substance: PREDNISONE
     Route: 048
     Dates: start: 201303, end: 201404
  69. HUMIRA [Suspect]
     Active Substance: ADALIMUMAB
     Indication: Rheumatoid arthritis
     Route: 058
  70. HUMIRA [Suspect]
     Active Substance: ADALIMUMAB
     Route: 065
  71. HUMIRA [Suspect]
     Active Substance: ADALIMUMAB
     Route: 058
     Dates: start: 20081118, end: 20090616
  72. HUMIRA [Suspect]
     Active Substance: ADALIMUMAB
     Route: 058
     Dates: end: 2010
  73. HUMIRA [Suspect]
     Active Substance: ADALIMUMAB
     Route: 058
     Dates: end: 2010
  74. HUMIRA [Suspect]
     Active Substance: ADALIMUMAB
     Route: 058
  75. HUMIRA [Suspect]
     Active Substance: ADALIMUMAB
     Route: 065
  76. INDOMETHACIN [Suspect]
     Active Substance: INDOMETHACIN
     Indication: Rheumatoid arthritis
     Route: 065
  77. PLAQUENIL [Suspect]
     Active Substance: HYDROXYCHLOROQUINE SULFATE
     Indication: Rheumatoid arthritis
     Route: 065
  78. LEFLUNOMIDE [Suspect]
     Active Substance: LEFLUNOMIDE
     Indication: Rheumatoid arthritis
     Route: 065
  79. LEFLUNOMIDE [Suspect]
     Active Substance: LEFLUNOMIDE
     Route: 048
     Dates: start: 2005, end: 2008
  80. LEFLUNOMIDE [Suspect]
     Active Substance: LEFLUNOMIDE
     Route: 048
     Dates: start: 2005, end: 200806
  81. LEFLUNOMIDE [Suspect]
     Active Substance: LEFLUNOMIDE
     Route: 065
  82. LEFLUNOMIDE [Suspect]
     Active Substance: LEFLUNOMIDE
     Dosage: 5 DAYS OUT OF 7, CYCLICAL
     Route: 065
     Dates: start: 201404, end: 201407
  83. LEFLUNOMIDE [Suspect]
     Active Substance: LEFLUNOMIDE
     Route: 048
  84. LEFLUNOMIDE [Suspect]
     Active Substance: LEFLUNOMIDE
     Route: 065
  85. RITUXAN [Suspect]
     Active Substance: RITUXIMAB
     Indication: Rheumatoid arthritis
     Route: 042
  86. RITUXAN [Suspect]
     Active Substance: RITUXIMAB
     Route: 042
     Dates: start: 200908, end: 201007
  87. RITUXAN [Suspect]
     Active Substance: RITUXIMAB
     Route: 042
     Dates: end: 201101
  88. RITUXAN [Suspect]
     Active Substance: RITUXIMAB
     Route: 042
     Dates: start: 201401
  89. RITUXAN [Suspect]
     Active Substance: RITUXIMAB
     Route: 042
     Dates: start: 201508, end: 2015
  90. RITUXAN [Suspect]
     Active Substance: RITUXIMAB
     Route: 042
  91. RITUXAN [Suspect]
     Active Substance: RITUXIMAB
     Route: 065
  92. ORENCIA [Suspect]
     Active Substance: ABATACEPT
     Indication: Rheumatoid arthritis
     Route: 042
  93. ORENCIA [Suspect]
     Active Substance: ABATACEPT
     Route: 065
     Dates: start: 201204, end: 201302
  94. ORENCIA [Suspect]
     Active Substance: ABATACEPT
     Route: 065
     Dates: start: 201206
  95. ORENCIA [Suspect]
     Active Substance: ABATACEPT
     Route: 065
     Dates: end: 201302
  96. ORENCIA [Suspect]
     Active Substance: ABATACEPT
     Route: 065
  97. INDOMETHACIN [Suspect]
     Active Substance: INDOMETHACIN
     Indication: Rheumatoid arthritis
     Route: 065
  98. ACTEMRA [Suspect]
     Active Substance: TOCILIZUMAB
     Indication: Rheumatoid arthritis
     Route: 065
  99. ACTEMRA [Suspect]
     Active Substance: TOCILIZUMAB
     Route: 065
     Dates: start: 201010
  100. ACTEMRA [Suspect]
     Active Substance: TOCILIZUMAB
     Dosage: CYCLICAL
     Route: 065
     Dates: end: 201204
  101. ACTEMRA [Suspect]
     Active Substance: TOCILIZUMAB
     Route: 065
     Dates: start: 201010
  102. ACTEMRA [Suspect]
     Active Substance: TOCILIZUMAB
     Route: 065
  103. ACTEMRA [Suspect]
     Active Substance: TOCILIZUMAB
     Route: 065
  104. ACTEMRA [Suspect]
     Active Substance: TOCILIZUMAB
     Route: 065
  105. ACTEMRA [Suspect]
     Active Substance: TOCILIZUMAB
     Route: 065
  106. ACTEMRA [Suspect]
     Active Substance: TOCILIZUMAB
     Route: 065
  107. ACTEMRA [Suspect]
     Active Substance: TOCILIZUMAB
     Route: 065
  108. ACTEMRA [Suspect]
     Active Substance: TOCILIZUMAB
     Route: 065
  109. ACTEMRA [Suspect]
     Active Substance: TOCILIZUMAB
     Route: 065
  110. HYDROXYCHLOROQUINE SULFATE [Suspect]
     Active Substance: HYDROXYCHLOROQUINE SULFATE
     Indication: Rheumatoid arthritis
     Route: 065
  111. HYDROXYCHLOROQUINE SULFATE [Suspect]
     Active Substance: HYDROXYCHLOROQUINE SULFATE
     Route: 065
  112. HYDROXYCHLOROQUINE SULFATE [Suspect]
     Active Substance: HYDROXYCHLOROQUINE SULFATE
     Route: 065
  113. GOLD AU-198 [Suspect]
     Active Substance: GOLD AU-198
     Indication: Rheumatoid arthritis
     Route: 065
  114. PREDNISONE [Suspect]
     Active Substance: PREDNISONE
     Indication: Rheumatoid arthritis
     Route: 065
  115. PREDNISONE [Suspect]
     Active Substance: PREDNISONE
     Route: 048
  116. PREDNISONE [Suspect]
     Active Substance: PREDNISONE
     Route: 048
  117. LEFLUNOMIDE [Suspect]
     Active Substance: LEFLUNOMIDE
     Indication: Rheumatoid arthritis
     Route: 048
  118. LEFLUNOMIDE [Suspect]
     Active Substance: LEFLUNOMIDE
     Route: 065
  119. LEFLUNOMIDE [Suspect]
     Active Substance: LEFLUNOMIDE
     Route: 065
  120. LEFLUNOMIDE [Suspect]
     Active Substance: LEFLUNOMIDE
     Route: 048
  121. GOLD [Suspect]
     Active Substance: GOLD
     Indication: Rheumatoid arthritis
     Route: 065
  122. HYDROXYCHLOROQUINE SULFATE [Suspect]
     Active Substance: HYDROXYCHLOROQUINE SULFATE
     Indication: Rheumatoid arthritis
     Route: 065
  123. HYDROXYCHLOROQUINE SULFATE [Suspect]
     Active Substance: HYDROXYCHLOROQUINE SULFATE
     Route: 065
  124. HYDROXYCHLOROQUINE SULFATE [Suspect]
     Active Substance: HYDROXYCHLOROQUINE SULFATE
     Route: 048
  125. HYDROXYCHLOROQUINE SULFATE [Suspect]
     Active Substance: HYDROXYCHLOROQUINE SULFATE
     Route: 065
  126. HYDROXYCHLOROQUINE SULFATE [Suspect]
     Active Substance: HYDROXYCHLOROQUINE SULFATE
     Route: 065
  127. HYDROXYCHLOROQUINE SULFATE [Suspect]
     Active Substance: HYDROXYCHLOROQUINE SULFATE
     Route: 065
  128. CODEINE [Suspect]
     Active Substance: CODEINE
     Indication: Product used for unknown indication
     Route: 065
  129. ALENDRONATE [Suspect]
     Active Substance: ALENDRONATE SODIUM
     Indication: Product used for unknown indication
     Route: 065
  130. ALENDRONATE [Suspect]
     Active Substance: ALENDRONATE SODIUM
     Route: 065
  131. ALENDRONATE [Suspect]
     Active Substance: ALENDRONATE SODIUM
     Route: 065
  132. MYOCHRYSINE [Suspect]
     Active Substance: GOLD SODIUM THIOMALATE
     Indication: Rheumatoid arthritis
     Route: 030
     Dates: start: 1989
  133. MYOCHRYSINE [Suspect]
     Active Substance: GOLD SODIUM THIOMALATE
     Indication: Rash
     Route: 030
  134. MYOCHRYSINE [Suspect]
     Active Substance: GOLD SODIUM THIOMALATE
     Route: 051
     Dates: start: 1989
  135. MYOCHRYSINE [Suspect]
     Active Substance: GOLD SODIUM THIOMALATE
     Dosage: CYCLICAL
     Route: 030
  136. MYOCHRYSINE [Suspect]
     Active Substance: GOLD SODIUM THIOMALATE
     Route: 065
  137. MYOCHRYSINE [Suspect]
     Active Substance: GOLD SODIUM THIOMALATE
     Route: 030
  138. MYOCHRYSINE [Suspect]
     Active Substance: GOLD SODIUM THIOMALATE
     Route: 030
  139. TOCILIZUMAB [Suspect]
     Active Substance: TOCILIZUMAB
     Indication: Rheumatoid arthritis
     Route: 065
  140. TOCILIZUMAB [Suspect]
     Active Substance: TOCILIZUMAB
     Route: 065
  141. TOCILIZUMAB [Suspect]
     Active Substance: TOCILIZUMAB
     Route: 065
  142. HYDROXYCHLOROQUINE [Suspect]
     Active Substance: HYDROXYCHLOROQUINE
     Indication: Rheumatoid arthritis
     Route: 048
  143. HYDROXYCHLOROQUINE [Suspect]
     Active Substance: HYDROXYCHLOROQUINE
     Route: 048
  144. HYDROXYCHLOROQUINE [Suspect]
     Active Substance: HYDROXYCHLOROQUINE
     Route: 065
  145. HYDROXYCHLOROQUINE [Suspect]
     Active Substance: HYDROXYCHLOROQUINE
     Route: 048
  146. HYDROXYCHLOROQUINE [Suspect]
     Active Substance: HYDROXYCHLOROQUINE
     Route: 065
  147. ARAVA [Suspect]
     Active Substance: LEFLUNOMIDE
     Indication: Rheumatoid arthritis
     Route: 065
  148. ARAVA [Suspect]
     Active Substance: LEFLUNOMIDE
     Route: 048
  149. RITUXIMAB [Suspect]
     Active Substance: RITUXIMAB
     Indication: Rheumatoid arthritis
     Route: 042
  150. RITUXIMAB [Suspect]
     Active Substance: RITUXIMAB
     Route: 042
  151. RITUXIMAB [Suspect]
     Active Substance: RITUXIMAB
     Route: 042
  152. RITUXIMAB [Suspect]
     Active Substance: RITUXIMAB
     Route: 065
  153. RITUXIMAB [Suspect]
     Active Substance: RITUXIMAB
     Route: 042
  154. RITUXIMAB [Suspect]
     Active Substance: RITUXIMAB
     Route: 065
  155. ALENDRONIC ACID [Suspect]
     Active Substance: ALENDRONIC ACID
     Indication: Product used for unknown indication
     Route: 065
  156. ALENDRONIC ACID [Suspect]
     Active Substance: ALENDRONIC ACID
     Route: 065
  157. CIMZIA [Suspect]
     Active Substance: CERTOLIZUMAB PEGOL
     Indication: Product used for unknown indication
     Route: 058
  158. SIMPONI [Suspect]
     Active Substance: GOLIMUMAB
     Indication: Product used for unknown indication
     Route: 058
  159. SIMPONI [Suspect]
     Active Substance: GOLIMUMAB
     Route: 065
  160. CELEBREX [Suspect]
     Active Substance: CELECOXIB
     Indication: Rheumatoid arthritis
     Route: 065
  161. ADALIMUMAB [Suspect]
     Active Substance: ADALIMUMAB
     Indication: Rheumatoid arthritis
     Dosage: CYCLICAL
     Route: 058
  162. NAPROXEN [Suspect]
     Active Substance: NAPROXEN
     Indication: Product used for unknown indication
     Route: 065
  163. AZATHIOPRINE [Suspect]
     Active Substance: AZATHIOPRINE
     Indication: Product used for unknown indication
     Route: 065
  164. FOSAMAX [Suspect]
     Active Substance: ALENDRONATE SODIUM
     Indication: Product used for unknown indication
     Route: 065
  165. ACETAMINOPHEN [Suspect]
     Active Substance: ACETAMINOPHEN
     Indication: Premedication
     Route: 048
  166. BENADRYL [Suspect]
     Active Substance: DIPHENHYDRAMINE HYDROCHLORIDE
     Indication: Premedication
     Route: 048
  167. METHYLPREDNISOLONE SODIUM SUCCINATE [Suspect]
     Active Substance: METHYLPREDNISOLONE SODIUM SUCCINATE
     Indication: Premedication
     Route: 042
  168. INFLIXIMAB [Suspect]
     Active Substance: INFLIXIMAB
     Indication: Product used for unknown indication
     Route: 042
  169. FOLIC ACID [Suspect]
     Active Substance: FOLIC ACID
     Indication: Product used for unknown indication
     Route: 048
  170. FOLIC ACID [Suspect]
     Active Substance: FOLIC ACID
     Route: 048
  171. ALENDRONATE SODIUM [Suspect]
     Active Substance: ALENDRONATE SODIUM
     Indication: Rheumatoid arthritis
     Route: 065
  172. ALENDRONATE SODIUM [Suspect]
     Active Substance: ALENDRONATE SODIUM
     Route: 065
  173. ETANERCEPT [Suspect]
     Active Substance: ETANERCEPT
     Indication: Rheumatoid arthritis
     Dosage: 2X/WEEK
     Route: 065
  174. ETANERCEPT [Suspect]
     Active Substance: ETANERCEPT
     Route: 065
  175. ADVIL [Concomitant]
     Active Substance: IBUPROFEN
     Route: 065
  176. DEMEROL [Concomitant]
     Active Substance: MEPERIDINE HYDROCHLORIDE
     Route: 065
  177. CYMBALTA [Concomitant]
     Active Substance: DULOXETINE HYDROCHLORIDE
     Dosage: NIGHTLY
     Route: 048
  178. FOLIC ACID [Concomitant]
     Active Substance: FOLIC ACID
     Indication: Rheumatoid arthritis
     Route: 048
  179. FOLIC ACID [Concomitant]
     Active Substance: FOLIC ACID
     Route: 048
  180. XELJANZ [Concomitant]
     Active Substance: TOFACITINIB CITRATE
     Indication: Rheumatoid arthritis
     Route: 048
  181. XELJANZ [Concomitant]
     Active Substance: TOFACITINIB CITRATE
     Route: 065
  182. XELJANZ [Concomitant]
     Active Substance: TOFACITINIB CITRATE
     Route: 065
  183. XELJANZ [Concomitant]
     Active Substance: TOFACITINIB CITRATE
     Route: 048
  184. XELJANZ [Concomitant]
     Active Substance: TOFACITINIB CITRATE
     Route: 048
  185. XELJANZ [Concomitant]
     Active Substance: TOFACITINIB CITRATE
     Route: 065
  186. PREDNISONE [Concomitant]
     Active Substance: PREDNISONE
     Indication: Rheumatoid arthritis
     Route: 065
     Dates: start: 201303, end: 201404
  187. PREDNISONE [Concomitant]
     Active Substance: PREDNISONE
     Route: 065
  188. PREDNISONE [Concomitant]
     Active Substance: PREDNISONE
     Route: 065
  189. PREDNISONE [Concomitant]
     Active Substance: PREDNISONE
     Route: 065
  190. PREDNISONE [Concomitant]
     Active Substance: PREDNISONE
     Route: 065
  191. PREDNISONE [Concomitant]
     Active Substance: PREDNISONE
     Route: 065
  192. PREDNISONE [Concomitant]
     Active Substance: PREDNISONE
     Route: 065
  193. CYCLOSPORINE [Concomitant]
     Active Substance: CYCLOSPORINE
     Indication: Rheumatoid arthritis
     Route: 065
     Dates: end: 20160420
  194. CYCLOSPORINE [Concomitant]
     Active Substance: CYCLOSPORINE
     Route: 065
     Dates: end: 20160420
  195. VITAMIN B COMPLEX [Concomitant]
     Active Substance: CYANOCOBALAMIN\DEXPANTHENOL\NIACINAMIDE\PYRIDOXINE HYDROCHLORIDE\RIBOFLAVIN 5^-PHOSPHATE SODIUM\THIA
     Route: 065
  196. FISH OIL [Concomitant]
     Active Substance: FISH OIL
     Route: 065
  197. CIPRODEX [Concomitant]
     Active Substance: CIPROFLOXACIN HYDROCHLORIDE\DEXAMETHASONE
     Route: 065
  198. ALENDRONATE SODIUM [Concomitant]
     Active Substance: ALENDRONATE SODIUM
     Route: 065
  199. PREDNISOLONE [Concomitant]
     Active Substance: PREDNISOLONE
     Route: 065
  200. LEFLUNOMIDE [Concomitant]
     Active Substance: LEFLUNOMIDE
     Indication: Rheumatoid arthritis
     Route: 048
     Dates: start: 2005, end: 2008
  201. LEFLUNOMIDE [Concomitant]
     Active Substance: LEFLUNOMIDE
     Route: 065
  202. LEFLUNOMIDE [Concomitant]
     Active Substance: LEFLUNOMIDE
     Route: 065
  203. ARAVA [Concomitant]
     Active Substance: LEFLUNOMIDE
     Route: 065
  204. ARAVA [Concomitant]
     Active Substance: LEFLUNOMIDE
     Route: 065

REACTIONS (77)
  - Drug ineffective [Not Recovered/Not Resolved]
  - Therapeutic product effect decreased [Not Recovered/Not Resolved]
  - Therapeutic response decreased [Not Recovered/Not Resolved]
  - Product use issue [Unknown]
  - Therapeutic product effect incomplete [Not Recovered/Not Resolved]
  - Contraindicated product administered [Not Recovered/Not Resolved]
  - Product use issue [Not Recovered/Not Resolved]
  - Disability [Not Recovered/Not Resolved]
  - Limb deformity [Not Recovered/Not Resolved]
  - Neck mass [Not Recovered/Not Resolved]
  - Mood swings [Not Recovered/Not Resolved]
  - Bone density abnormal [Not Recovered/Not Resolved]
  - Pain [Unknown]
  - Asthenia [Not Recovered/Not Resolved]
  - Anti-cyclic citrullinated peptide antibody positive [Not Recovered/Not Resolved]
  - Nasopharyngitis [Unknown]
  - Hypercalcaemia [Not Recovered/Not Resolved]
  - Blood parathyroid hormone decreased [Not Recovered/Not Resolved]
  - Panniculitis [Not Recovered/Not Resolved]
  - Aspartate aminotransferase increased [Not Recovered/Not Resolved]
  - Alanine aminotransferase increased [Not Recovered/Not Resolved]
  - Basal cell carcinoma [Not Recovered/Not Resolved]
  - Drug tolerance decreased [Unknown]
  - Red blood cell sedimentation rate increased [Not Recovered/Not Resolved]
  - Peripheral swelling [Not Recovered/Not Resolved]
  - Skin ulcer [Not Recovered/Not Resolved]
  - Drug eruption [Not Recovered/Not Resolved]
  - Rash pruritic [Not Recovered/Not Resolved]
  - Skin necrosis [Unknown]
  - C-reactive protein increased [Unknown]
  - Granuloma skin [Unknown]
  - Inflammation [Unknown]
  - Loss of personal independence in daily activities [Not Recovered/Not Resolved]
  - Rheumatoid nodule [Unknown]
  - Hypersensitivity [Not Recovered/Not Resolved]
  - Ulcer [Unknown]
  - Musculoskeletal stiffness [Unknown]
  - Decreased appetite [Not Recovered/Not Resolved]
  - Headache [Not Recovered/Not Resolved]
  - Hypercholesterolaemia [Not Recovered/Not Resolved]
  - Malaise [Not Recovered/Not Resolved]
  - Nausea [Not Recovered/Not Resolved]
  - Stress [Not Recovered/Not Resolved]
  - Vomiting [Not Recovered/Not Resolved]
  - Infection [Not Recovered/Not Resolved]
  - Ankle fracture [Not Recovered/Not Resolved]
  - Alopecia [Not Recovered/Not Resolved]
  - Gastric disorder [Not Recovered/Not Resolved]
  - Drug tolerance [Unknown]
  - Deafness [Not Recovered/Not Resolved]
  - Rosacea [Not Recovered/Not Resolved]
  - Somnolence [Not Recovered/Not Resolved]
  - Weight increased [Not Recovered/Not Resolved]
  - Abdominal pain upper [Not Recovered/Not Resolved]
  - Blood pressure fluctuation [Not Recovered/Not Resolved]
  - Body temperature decreased [Not Recovered/Not Resolved]
  - Chills [Not Recovered/Not Resolved]
  - Cough [Not Recovered/Not Resolved]
  - Fatigue [Not Recovered/Not Resolved]
  - Insomnia [Not Recovered/Not Resolved]
  - Musculoskeletal pain [Not Recovered/Not Resolved]
  - Oropharyngeal pain [Not Recovered/Not Resolved]
  - Pain in extremity [Not Recovered/Not Resolved]
  - Drug intolerance [Not Recovered/Not Resolved]
  - Pyrexia [Not Recovered/Not Resolved]
  - Rash [Not Recovered/Not Resolved]
  - Swelling [Not Recovered/Not Resolved]
  - Rheumatoid lung [Unknown]
  - Mobility decreased [Not Recovered/Not Resolved]
  - Osteomyelitis [Not Recovered/Not Resolved]
  - Abdominal discomfort [Not Recovered/Not Resolved]
  - Enthesopathy [Not Recovered/Not Resolved]
  - Psoriatic arthropathy [Not Recovered/Not Resolved]
  - Synovitis [Not Recovered/Not Resolved]
  - Tendonitis [Not Recovered/Not Resolved]
  - Tenosynovitis [Not Recovered/Not Resolved]
  - Tongue disorder [Not Recovered/Not Resolved]

NARRATIVE: CASE EVENT DATE: 20080101
